FAERS Safety Report 7397007-1 (Version None)
Quarter: 2011Q1

REPORT INFORMATION
  Report Type: 
  Country: None (occurrence: None)
  Receive Date: 20110331
  Receipt Date: 20110331
  Transmission Date: 20110831
  Serious: Yes (Other)
  Sender: FDA-Public Use
  Company Number: None

PATIENT
  Sex: Female
  Weight: 122.4712 kg

DRUGS (1)
  1. GEODON [Suspect]
     Indication: BIPOLAR I DISORDER
     Dosage: 80 MG CAP 2 CAPSULES BY MOUTH @BEDTIME WITH FOOD
     Route: 048
     Dates: start: 20110204, end: 20110208

REACTIONS (1)
  - HALLUCINATIONS, MIXED [None]
